APPROVED DRUG PRODUCT: CARDIOGRAFIN
Active Ingredient: DIATRIZOATE MEGLUMINE
Strength: 85%
Dosage Form/Route: INJECTABLE;INJECTION
Application: N011620 | Product #002
Applicant: BRACCO DIAGNOSTICS INC
Approved: Approved Prior to Jan 1, 1982 | RLD: No | RS: No | Type: DISCN